FAERS Safety Report 10905831 (Version 2)
Quarter: 2015Q2

REPORT INFORMATION
  Report Type: Spontaneous
  Country: CA (occurrence: None)
  Receive Date: 20150302
  Receipt Date: 20150424
  Transmission Date: 20150821
  Serious: Yes (Hospitalization)
  Sender: FDA-Public Use
  Company Number: GTI002996

PATIENT
  Age: 72 Year
  Sex: Male
  Weight: 63 kg

DRUGS (7)
  1. ADVAIR HFA [Concomitant]
     Active Substance: FLUTICASONE PROPIONATE\SALMETEROL XINAFOATE
  2. PROLASTIN-C [Suspect]
     Active Substance: .ALPHA.1-PROTEINASE INHIBITOR HUMAN
     Indication: ALPHA-1 ANTI-TRYPSIN DEFICIENCY
     Route: 042
     Dates: start: 20141103
  3. PROLASTIN-C [Suspect]
     Active Substance: .ALPHA.1-PROTEINASE INHIBITOR HUMAN
     Indication: EMPHYSEMA
     Route: 042
     Dates: start: 20141103
  4. SALBUTAMOL [Concomitant]
     Active Substance: ALBUTEROL
  5. ADAVENT [Concomitant]
  6. METOPROLOL [Concomitant]
     Active Substance: METOPROLOL
  7. ATROVENT [Concomitant]
     Active Substance: IPRATROPIUM BROMIDE
     Indication: ALPHA-1 ANTI-TRYPSIN DEFICIENCY

REACTIONS (6)
  - Emphysema [None]
  - Chronic obstructive pulmonary disease [None]
  - Disease progression [None]
  - Pneumonia viral [None]
  - Upper respiratory tract infection [None]
  - Chills [None]

NARRATIVE: CASE EVENT DATE: 20141226
